FAERS Safety Report 6430409-6 (Version None)
Quarter: 2009Q4

REPORT INFORMATION
  Report Type: 
  Country: None (occurrence: None)
  Receive Date: 20091106
  Receipt Date: 20091102
  Transmission Date: 20100525
  Serious: Yes (Death, Other)
  Sender: FDA-Public Use
  Company Number: JP-ELI_LILLY_AND_COMPANY-JP200910007315

PATIENT
  Sex: Female
  Weight: 69.5 kg

DRUGS (29)
  1. ALIMTA [Suspect]
     Indication: LUNG ADENOCARCINOMA STAGE IV
     Dosage: 500 MG/M2, OTHER
     Route: 042
     Dates: start: 20090622, end: 20090824
  2. GEMZAR [Suspect]
     Indication: LUNG ADENOCARCINOMA STAGE IV
     Dosage: 1000 MG/M2, OTHER
     Route: 042
     Dates: start: 20090325, end: 20090401
  3. GEMZAR [Suspect]
     Dosage: 1500 MG, OTHER
     Route: 042
     Dates: start: 20090422, end: 20090430
  4. GEMZAR [Suspect]
     Dosage: 1480 MG, OTHER
     Route: 042
     Dates: start: 20090525, end: 20090525
  5. PANVITAN [Concomitant]
     Dosage: 0.5 MG, DAILY (1/D)
     Route: 048
  6. METHYCOBAL [Concomitant]
     Dosage: 1 MG, OTHER
     Route: 030
     Dates: start: 20090617
  7. CISPLATIN [Concomitant]
     Indication: LUNG ADENOCARCINOMA STAGE IV
     Dosage: 60 MG/M2, OTHER
     Route: 042
     Dates: start: 20090325, end: 20090325
  8. CISPLATIN [Concomitant]
     Dosage: 60 MG/M2, OTHER
     Route: 042
     Dates: start: 20090422, end: 20090422
  9. CISPLATIN [Concomitant]
     Dosage: 50 MG/M2, OTHER
     Route: 042
     Dates: start: 20090525, end: 20090525
  10. BASEN [Concomitant]
     Indication: TYPE 2 DIABETES MELLITUS
     Dosage: 0.2 MG, 3/D
     Route: 048
  11. GLIMICRON [Concomitant]
     Indication: TYPE 2 DIABETES MELLITUS
     Dosage: 40 MG, 2/D
     Route: 048
  12. ACTOS [Concomitant]
     Indication: TYPE 2 DIABETES MELLITUS
     Dosage: 15 MG, DAILY (1/D)
     Route: 048
  13. FRENADOL [Concomitant]
     Indication: ANGINA PECTORIS
     Dosage: 40 MG, DAILY (1/D)
     Route: 062
  14. ITOROL [Concomitant]
     Indication: ANGINA PECTORIS
     Dosage: 20 MG, 2/D
     Route: 048
  15. SIGMART [Concomitant]
     Indication: ANGINA PECTORIS
     Dosage: 5 MG, 3/D
     Route: 048
  16. RENIVEZE /JPN/ [Concomitant]
     Dosage: 5 MG, DAILY (1/D)
     Route: 048
  17. CONIEL [Concomitant]
     Dosage: 4 MG, 2/D
     Route: 048
  18. ZANTAC [Concomitant]
     Dosage: 150 MG, DAILY (1/D)
     Route: 048
  19. NAUZELIN [Concomitant]
     Dosage: 10 MG, 3/D
     Route: 048
  20. BERIZYM [Concomitant]
     Dosage: 0.4 MG, 3/D
     Route: 048
  21. MAGMITT [Concomitant]
     Dosage: 330 MG, 3/D
     Route: 048
  22. PURSENNID [Concomitant]
     Dosage: 12 MG, DAILY (1/D)
     Route: 048
  23. CRESTOR [Concomitant]
     Dosage: 2.5 MG, DAILY (1/D)
     Route: 048
  24. PAXIL [Concomitant]
     Indication: PANIC DISORDER
     Dosage: 10 MG, 2/D
     Route: 048
  25. ANAFRANIL [Concomitant]
     Dosage: 15 MG, DAILY (1/D)
     Route: 048
  26. LOXONIN [Concomitant]
     Dosage: 60 MG, 3/D
     Route: 048
  27. OXYCONTIN [Concomitant]
     Dosage: 15 MG, 2/D
     Route: 048
  28. OPSO [Concomitant]
     Dosage: 10 MG, DAILY (1/D)
     Route: 048
  29. DECADRON [Concomitant]
     Dosage: 4 MG, D2, 3 FOR EVERY CYCLE
     Route: 048
     Dates: start: 20090623

REACTIONS (3)
  - FATIGUE [None]
  - INTERSTITIAL LUNG DISEASE [None]
  - MALIGNANT NEOPLASM PROGRESSION [None]
